FAERS Safety Report 24035638 (Version 3)
Quarter: 2024Q3

REPORT INFORMATION
  Report Type: Spontaneous
  Country: US (occurrence: US)
  Receive Date: 20240701
  Receipt Date: 20240712
  Transmission Date: 20241017
  Serious: No
  Sender: PFIZER
  Company Number: US-PFIZER INC-202400203375

PATIENT
  Sex: Male

DRUGS (4)
  1. HALCION [Suspect]
     Active Substance: TRIAZOLAM
     Dosage: 0.25 MG
  2. HALCION [Suspect]
     Active Substance: TRIAZOLAM
     Dosage: 0.5 MG
  3. HALCION [Suspect]
     Active Substance: TRIAZOLAM
     Dosage: 3 PILLS A DAY
  4. TRIAZOLAM [Suspect]
     Active Substance: TRIAZOLAM
     Dosage: 0.125 MG

REACTIONS (2)
  - Drug ineffective [Unknown]
  - Intentional overdose [Unknown]
